FAERS Safety Report 19809423 (Version 1)
Quarter: 2021Q3

REPORT INFORMATION
  Report Type: Spontaneous
  Country: US (occurrence: US)
  Receive Date: 20210908
  Receipt Date: 20210908
  Transmission Date: 20211014
  Serious: No
  Sender: FDA-Public Use
  Company Number: US-PFIZER INC-202101033931

PATIENT
  Age: 15 Year
  Sex: Male
  Weight: 33.11 kg

DRUGS (2)
  1. GENOTROPIN [Suspect]
     Active Substance: SOMATROPIN
     Dosage: 1.8 MG, 1X/DAY
     Route: 058
     Dates: start: 20210726
  2. GENOTROPIN [Suspect]
     Active Substance: SOMATROPIN
     Dosage: 1.6 MG, 1X/DAY
     Route: 058

REACTIONS (2)
  - Tinnitus [Unknown]
  - Headache [Unknown]

NARRATIVE: CASE EVENT DATE: 20210728
